FAERS Safety Report 23518706 (Version 1)
Quarter: 2024Q1

REPORT INFORMATION
  Report Type: Spontaneous
  Country: ES (occurrence: ES)
  Receive Date: 20240213
  Receipt Date: 20240213
  Transmission Date: 20240410
  Serious: Yes (Hospitalization)
  Sender: FDA-Public Use
  Company Number: None

PATIENT
  Age: 44 Year
  Sex: Female
  Weight: 60 kg

DRUGS (1)
  1. CIBINQO [Suspect]
     Active Substance: ABROCITINIB
     Indication: Dermatitis atopic
     Dosage: 200 MG, 1X/DAY (EVERY 24 HOURS)
     Route: 048
     Dates: start: 20231117

REACTIONS (2)
  - Chest pain [Recovering/Resolving]
  - Infarction [Recovering/Resolving]

NARRATIVE: CASE EVENT DATE: 20240125
